FAERS Safety Report 8510327-X (Version None)
Quarter: 2012Q3

REPORT INFORMATION
  Report Type: 
  Country: None (occurrence: None)
  Receive Date: 20120713
  Receipt Date: 20120712
  Transmission Date: 20120928
  Serious: Yes (Hospitalization)
  Sender: FDA-Public Use
  Company Number: BR-ROCHE-1039535

PATIENT
  Age: 43 Year
  Sex: Female
  Weight: 69.2 kg

DRUGS (2)
  1. ACTEMRA [Suspect]
     Indication: RHEUMATOID ARTHRITIS
     Dosage: DATE OF MOST RECENT DOSE 18/JAN/2012
     Route: 058
     Dates: start: 20110817
  2. ACTEMRA [Suspect]
     Indication: RHEUMATOID ARTHRITIS
     Dosage: DELIVERY METHOD: AUTO INJECTOR, DATE OF MOST RECENT DOSE 29 FEB 2012
     Route: 058
     Dates: start: 20120130

REACTIONS (5)
  - HEPATITIS [None]
  - INJECTION SITE ERYTHEMA [None]
  - PANCREATITIS ACUTE [None]
  - ALANINE AMINOTRANSFERASE INCREASED [None]
  - INJECTION SITE PRURITUS [None]
